FAERS Safety Report 8989764 (Version 1)
Quarter: 2012Q4

REPORT INFORMATION
  Report Type: 
  Country: IT (occurrence: IT)
  Receive Date: 20121228
  Receipt Date: 20121228
  Transmission Date: 20130627
  Serious: Yes (Hospitalization)
  Sender: FDA-Public Use
  Company Number: IT-B.I. PHARMACEUTICALS,INC./RIDGEFIELD-2012-IT-00423IT

PATIENT
  Age: 78 Year
  Sex: Female

DRUGS (4)
  1. MICARDIS PLUS [Suspect]
     Dosage: one posologic unit total
     Route: 048
     Dates: start: 20120529, end: 20120529
  2. COVERSYL [Concomitant]
  3. FOSAVANCE [Concomitant]
  4. CARNITENE [Concomitant]

REACTIONS (6)
  - Abdominal pain [Not Recovered/Not Resolved]
  - Hypersensitivity [Not Recovered/Not Resolved]
  - Leukopenia [Not Recovered/Not Resolved]
  - Nausea [Not Recovered/Not Resolved]
  - Retching [Not Recovered/Not Resolved]
  - Vision blurred [Not Recovered/Not Resolved]
